FAERS Safety Report 14165227 (Version 2)
Quarter: 2017Q4

REPORT INFORMATION
  Report Type: Spontaneous
  Country: US (occurrence: US)
  Receive Date: 20171107
  Receipt Date: 20171116
  Transmission Date: 20180321
  Serious: Yes (Hospitalization, Other)
  Sender: FDA-Public Use
  Company Number: US-AUROBINDO-AUR-APL-2017-43213

PATIENT
  Age: 65 Year
  Sex: Female

DRUGS (2)
  1. METHYLPREDNISOLONE. [Suspect]
     Active Substance: METHYLPREDNISOLONE
     Indication: IMMUNOSUPPRESSION
     Route: 048
  2. PREDNISONE. [Suspect]
     Active Substance: PREDNISONE
     Indication: IMMUNOSUPPRESSION
     Route: 065

REACTIONS (12)
  - Acute kidney injury [Unknown]
  - Fatigue [Unknown]
  - Acute hepatic failure [Unknown]
  - Pyrexia [Unknown]
  - Shock [Unknown]
  - Campylobacter sepsis [Unknown]
  - Cough [Unknown]
  - Bacteraemia [Unknown]
  - Delirium [Unknown]
  - Leukocytosis [Unknown]
  - Diarrhoea [Unknown]
  - Oliguria [Unknown]
